FAERS Safety Report 7806422-0 (Version None)
Quarter: 2011Q4

REPORT INFORMATION
  Report Type: 
  Country: None (occurrence: None)
  Receive Date: 20111011
  Receipt Date: 20110922
  Transmission Date: 20120403
  Serious: No
  Sender: FDA-Public Use
  Company Number: US-ROXANE LABORATORIES, INC.-2011-RO-01079RO

PATIENT
  Sex: Female

DRUGS (1)
  1. EXEMESTANE [Suspect]
     Indication: NEOPLASM MALIGNANT
     Dosage: 25 MG
     Route: 048

REACTIONS (6)
  - TABLET PHYSICAL ISSUE [None]
  - DIARRHOEA [None]
  - MALAISE [None]
  - DYSPEPSIA [None]
  - HEADACHE [None]
  - DIZZINESS [None]
